FAERS Safety Report 23242011 (Version 3)
Quarter: 2025Q4

REPORT INFORMATION
  Report Type: Spontaneous
  Country: EU (occurrence: EU)
  Receive Date: 20231129
  Receipt Date: 20251121
  Transmission Date: 20260117
  Serious: Yes (Disabling)
  Sender: MYLAN
  Company Number: EU-002147023-NVSC2023GR236038

PATIENT
  Age: 43 Year
  Sex: Female

DRUGS (6)
  1. METHOTREXATE [Suspect]
     Active Substance: METHOTREXATE
     Indication: Spondylitis
     Dosage: UNK
  2. METHOTREXATE [Suspect]
     Active Substance: METHOTREXATE
     Indication: Psoriatic arthropathy
     Dosage: 4 DOSAGE FORM, QW ( 4 PILLS OF 2,5MG) (STARTED: 4 YEARS AGO)
  3. METHOTREXATE [Suspect]
     Active Substance: METHOTREXATE
     Indication: Spondylitis
     Dosage: 4 DOSAGE FORM, QW ( 4 PILLS OF 2,5MG) (STARTED: 4 YEARS AGO)
  4. COSENTYX [Suspect]
     Active Substance: SECUKINUMAB
     Indication: Psoriatic arthropathy
     Dosage: UNK (INJECTION NOT OTHERWISE SPECIFIED)
  5. COSENTYX [Suspect]
     Active Substance: SECUKINUMAB
     Indication: Spondylitis
     Dosage: 300 MILLIGRAM, MONTHLY (STARTED 2 YEARS AGO)
  6. CYMBALTA [Concomitant]
     Active Substance: DULOXETINE HYDROCHLORIDE
     Indication: Fibromyalgia
     Dosage: UNK

REACTIONS (6)
  - Gait disturbance [Recovered/Resolved]
  - Bone pain [Recovered/Resolved]
  - Fatigue [Recovered/Resolved]
  - Asthenia [Recovered/Resolved]
  - Menstruation delayed [Recovered/Resolved]
  - Myalgia [Recovered/Resolved]
